FAERS Safety Report 5938307-9 (Version None)
Quarter: 2008Q4

REPORT INFORMATION
  Report Type: 
  Country: None (occurrence: None)
  Receive Date: 20081103
  Receipt Date: 20081022
  Transmission Date: 20090506
  Serious: Yes (Other)
  Sender: FDA-Public Use
  Company Number: US-RB-005687-08

PATIENT
  Age: 41 Year
  Sex: Female

DRUGS (2)
  1. MUCINEX D [Suspect]
     Dosage: TOOK PRODUCT AROUND NOON
     Dates: start: 20080908
  2. TRILEPTAL [Concomitant]

REACTIONS (4)
  - CONVULSION [None]
  - DYSPNOEA [None]
  - THROAT TIGHTNESS [None]
  - VOMITING [None]
